FAERS Safety Report 6464143-3 (Version None)
Quarter: 2009Q4

REPORT INFORMATION
  Report Type: 
  Country: None (occurrence: None)
  Receive Date: 20091110
  Receipt Date: 20090715
  Transmission Date: 20100525
  Serious: No
  Sender: FDA-Public Use
  Company Number: 1000007538

PATIENT
  Age: 55 Year
  Sex: Female

DRUGS (6)
  1. SAVELLA [Suspect]
     Indication: PAIN
     Dates: start: 20090601, end: 20090701
  2. FENTANYL [Concomitant]
  3. DURAGESIC-100 [Concomitant]
  4. METHADONE [Concomitant]
  5. BACLOFEN [Concomitant]
  6. SONATA [Concomitant]

REACTIONS (1)
  - EMOTIONAL DISORDER [None]
